FAERS Safety Report 18175003 (Version 10)
Quarter: 2022Q4

REPORT INFORMATION
  Report Type: Spontaneous
  Country: SE (occurrence: SE)
  Receive Date: 20200820
  Receipt Date: 20221124
  Transmission Date: 20230113
  Serious: Yes (Other)
  Sender: FDA-Public Use
  Company Number: SE-BIOGEN-2020BI00912618

PATIENT
  Age: 45 Year
  Sex: Female

DRUGS (1)
  1. TYSABRI [Suspect]
     Active Substance: NATALIZUMAB
     Indication: Multiple sclerosis
     Route: 050

REACTIONS (13)
  - Drug dependence [Unknown]
  - Depressed mood [Unknown]
  - Sleep disorder [Unknown]
  - Balance disorder [Unknown]
  - Mental disorder [Unknown]
  - Fear [Unknown]
  - Multiple sclerosis relapse [Unknown]
  - Paraesthesia [Unknown]
  - Temperature intolerance [Unknown]
  - Mental fatigue [Unknown]
  - Syncope [Unknown]
  - Fatigue [Unknown]
  - Nausea [Unknown]
